FAERS Safety Report 7501839-6 (Version None)
Quarter: 2011Q2

REPORT INFORMATION
  Report Type: 
  Country: None (occurrence: None)
  Receive Date: 20110525
  Receipt Date: 20110510
  Transmission Date: 20111010
  Serious: Yes (Hospitalization, Other)
  Sender: FDA-Public Use
  Company Number: US-BAYER-201032439NA

PATIENT
  Age: 47 Year
  Sex: Female
  Weight: 86 kg

DRUGS (4)
  1. YAZ [Suspect]
     Indication: CONTRACEPTION
     Dosage: UNK
     Route: 048
     Dates: start: 20070701, end: 20070901
  2. THYROID TAB [Concomitant]
     Indication: THYROID DISORDER
     Dosage: 60 MG, UNK
     Route: 048
  3. LOMOTIL [Concomitant]
     Indication: DIARRHOEA
     Dosage: UNK UNK, PRN
     Route: 048
  4. LIBRAX [Concomitant]
     Indication: IRRITABLE BOWEL SYNDROME
     Dosage: UNK UNK, PRN
     Route: 048

REACTIONS (4)
  - VERTIGO [None]
  - THROMBOTIC STROKE [None]
  - NAUSEA [None]
  - VOMITING [None]
